FAERS Safety Report 10203697 (Version 2)
Quarter: 2014Q2

REPORT INFORMATION
  Report Type: Spontaneous
  Country: FR (occurrence: FR)
  Receive Date: 20140529
  Receipt Date: 20140619
  Transmission Date: 20141212
  Serious: Yes (Hospitalization)
  Sender: FDA-Public Use
  Company Number: FR-JNJFOC-20140515635

PATIENT
  Age: 43 Year
  Sex: Female
  Weight: 58 kg

DRUGS (3)
  1. SIMPONI [Suspect]
     Indication: ANKYLOSING SPONDYLITIS
     Route: 058
  2. SIMPONI [Suspect]
     Indication: ANKYLOSING SPONDYLITIS
     Dosage: A YEAR AND HALF, APPROXIMATE NUMBER OF INJECTIONS: 15
     Route: 058
     Dates: start: 201212
  3. METHOTREXATE [Concomitant]
     Indication: PRODUCT USED FOR UNKNOWN INDICATION
     Dosage: FOR 5 YEARS
     Route: 065

REACTIONS (1)
  - Medullary thyroid cancer [Unknown]
